FAERS Safety Report 5333590-5 (Version None)
Quarter: 2007Q2

REPORT INFORMATION
  Report Type: 
  Country: None (occurrence: None)
  Receive Date: 20070524
  Receipt Date: 20070515
  Transmission Date: 20071010
  Serious: Yes (Other)
  Sender: FDA-Public Use
  Company Number: US-BAYER-200712798GDS

PATIENT
  Age: 35 Year
  Sex: Female

DRUGS (4)
  1. CIPROFLOXACIN [Suspect]
     Indication: CROHN'S DISEASE
     Route: 065
  2. MESALAMINE [Concomitant]
     Indication: CROHN'S DISEASE
     Route: 048
  3. 6-MERCAPTOPURINE (6MP) [Concomitant]
     Indication: CROHN'S DISEASE
  4. VITAMIN K TAB [Concomitant]
     Indication: VITAMIN SUPPLEMENTATION

REACTIONS (2)
  - ABORTION SPONTANEOUS [None]
  - CONTUSION [None]
